FAERS Safety Report 8270855-1 (Version None)
Quarter: 2012Q2

REPORT INFORMATION
  Report Type: 
  Country: None (occurrence: None)
  Receive Date: 20120410
  Receipt Date: 20120410
  Transmission Date: 20120825
  Serious: No
  Sender: FDA-Public Use
  Company Number: None

PATIENT
  Age: 28 Year
  Sex: Female
  Weight: 90.718 kg

DRUGS (1)
  1. RISPERIDONE [Suspect]
     Dosage: DAILY
     Route: 048

REACTIONS (1)
  - BLOOD PROLACTIN INCREASED [None]
